FAERS Safety Report 9169515 (Version 1)
Quarter: 2013Q1

REPORT INFORMATION
  Report Type: Spontaneous
  Country: JP (occurrence: JP)
  Receive Date: 20130318
  Receipt Date: 20130318
  Transmission Date: 20140127
  Serious: Yes (Hospitalization)
  Sender: FDA-Public Use
  Company Number: JP-MYLANLABS-2013S1005245

PATIENT
  Age: 61 Year
  Sex: Male

DRUGS (2)
  1. TACROLIMUS [Suspect]
     Indication: IMMUNOSUPPRESSION
     Route: 048
     Dates: end: 201009
  2. CICLOSPORIN [Concomitant]
     Route: 065

REACTIONS (2)
  - Hepatic function abnormal [Recovering/Resolving]
  - Glomerulonephritis membranous [Recovering/Resolving]
